FAERS Safety Report 12239829 (Version 2)
Quarter: 2017Q1

REPORT INFORMATION
  Report Type: Spontaneous
  Country: US (occurrence: US)
  Receive Date: 20160405
  Receipt Date: 20170316
  Transmission Date: 20170428
  Serious: No
  Sender: FDA-Public Use
  Company Number: US-ROCHE-1622688

PATIENT
  Sex: Male

DRUGS (3)
  1. ERIVEDGE [Suspect]
     Active Substance: VISMODEGIB
     Indication: BASAL CELL CARCINOMA
     Route: 048
     Dates: start: 20150724
  2. ERIVEDGE [Suspect]
     Active Substance: VISMODEGIB
     Dosage: EVERY OTHER DAY
     Route: 048
  3. PERCOCET [Concomitant]
     Active Substance: ACETAMINOPHEN\OXYCODONE HYDROCHLORIDE

REACTIONS (6)
  - Pain [Unknown]
  - Atrophic glossitis [Recovering/Resolving]
  - Ageusia [Recovered/Resolved]
  - Bone pain [Unknown]
  - Muscle spasms [Unknown]
  - Bone disorder [Recovering/Resolving]
